FAERS Safety Report 8916053 (Version 1)
Quarter: 2012Q4

REPORT INFORMATION
  Report Type: 
  Country: US (occurrence: US)
  Receive Date: 20121119
  Receipt Date: 20121119
  Transmission Date: 20130627
  Serious: No
  Sender: FDA-Public Use
  Company Number: US-BAYER-2012-114431

PATIENT
  Age: 63 Year
  Sex: Female

DRUGS (1)
  1. BETASERON [Suspect]
     Indication: MS
     Dosage: 1 ml, QOD
     Route: 058
     Dates: start: 20120731

REACTIONS (1)
  - Injection site pain [None]
